FAERS Safety Report 22305435 (Version 3)
Quarter: 2023Q4

REPORT INFORMATION
  Report Type: Spontaneous
  Country: US (occurrence: US)
  Receive Date: 20230510
  Receipt Date: 20231229
  Transmission Date: 20240110
  Serious: No
  Sender: FDA-Public Use
  Company Number: US-BRISTOL-MYERS SQUIBB COMPANY-2023-066261

PATIENT
  Age: 65 Year
  Sex: Female

DRUGS (2)
  1. REVLIMID [Suspect]
     Active Substance: LENALIDOMIDE
     Indication: Angioimmunoblastic T-cell lymphoma
     Dosage: FREQUENCY: TAKE 1 CAPSULE BY MOUTH EVERY DAY.
     Route: 048
     Dates: start: 20230508
  2. REVLIMID [Suspect]
     Active Substance: LENALIDOMIDE
     Route: 048
     Dates: start: 20230526

REACTIONS (3)
  - Muscle fatigue [Not Recovered/Not Resolved]
  - Off label use [Unknown]
  - Pain in extremity [Unknown]
